FAERS Safety Report 21196907 (Version 2)
Quarter: 2022Q3

REPORT INFORMATION
  Report Type: Spontaneous
  Country: CZ (occurrence: CZ)
  Receive Date: 20220810
  Receipt Date: 20220920
  Transmission Date: 20221027
  Serious: Yes (Other)
  Sender: FDA-Public Use
  Company Number: CZ-BRISTOL-MYERS SQUIBB COMPANY-2022-084650

PATIENT
  Age: 53 Year
  Sex: Female

DRUGS (6)
  1. AZACITIDINE [Suspect]
     Active Substance: AZACITIDINE
     Indication: Chloroma
     Dosage: 75 MILLIGRAM/SQ. METER, CYCLE, FOR 5 DAYS
     Route: 058
     Dates: start: 202111
  2. AZACITIDINE [Suspect]
     Active Substance: AZACITIDINE
     Indication: Myelodysplastic syndrome
  3. VENETOCLAX [Suspect]
     Active Substance: VENETOCLAX
     Indication: Chloroma
     Dosage: 400 MILLIGRAM, QD, FULL RECOMMENDED DOSE, AFTER THE DISCONTINUATION OF VORICONAZOLE
     Route: 048
     Dates: start: 202112
  4. VENETOCLAX [Suspect]
     Active Substance: VENETOCLAX
     Indication: Myelodysplastic syndrome
     Dosage: 100 MILLIGRAM, QD, 75% REDUCTION IN THE RECOMMENDED DOSE OF 400 MG/DAY VENETOCLAX DUE TO CONCOMITANT
     Route: 048
     Dates: start: 202111, end: 202112
  5. VORICONAZOLE [Concomitant]
     Active Substance: VORICONAZOLE
     Indication: Antifungal prophylaxis
     Dosage: UNK
     Route: 065
     Dates: start: 202111, end: 202112
  6. VORICONAZOLE [Concomitant]
     Active Substance: VORICONAZOLE
     Indication: Fusarium infection

REACTIONS (2)
  - Myelosuppression [Not Recovered/Not Resolved]
  - Off label use [Unknown]
